FAERS Safety Report 4577309-4 (Version None)
Quarter: 2005Q1

REPORT INFORMATION
  Report Type: 
  Country: None (occurrence: None)
  Receive Date: 20050210
  Receipt Date: 20050204
  Transmission Date: 20050727
  Serious: Yes (Hospitalization)
  Sender: FDA-Public Use
  Company Number: US-BRISTOL-MYERS SQUIBB COMPANY-12849980

PATIENT
  Age: 67 Year
  Sex: Male
  Weight: 64 kg

DRUGS (6)
  1. CETUXIMAB [Suspect]
     Indication: NON-SMALL CELL LUNG CANCER
     Dosage: INITIATED 02-NOV-04. INDUCTION DOSE 400 MG/M2 WK.1. TOTAL DOSE FROM 02-NOV-04 TO 17-JAN-05 5574 MG.
     Route: 042
     Dates: start: 20050117
  2. CARBOPLATIN [Suspect]
     Indication: NON-SMALL CELL LUNG CANCER
     Dosage: INITIATED 02-NOV-04 (TOTAL DOSE FROM 02-NOV-04 TO 17-JAN-05 1754 MG).
     Route: 042
     Dates: start: 20050117
  3. PACLITAXEL [Suspect]
     Indication: NON-SMALL CELL LUNG CANCER
     Dosage: INITIATED 02-NOV-04 (TOTAL DOSE FROM 02-NOV-04 TO 17-JAN-05 907 MG).
     Route: 042
     Dates: start: 20050117
  4. RADIATION THERAPY [Suspect]
     Indication: NON-SMALL CELL LUNG CANCER
  5. ARANESP [Concomitant]
     Route: 058
     Dates: start: 20050117
  6. NEULASTA [Concomitant]
     Route: 058
     Dates: start: 20050119

REACTIONS (6)
  - HAEMATOCRIT DECREASED [None]
  - HAEMOGLOBIN DECREASED [None]
  - LUNG INFECTION PSEUDOMONAL [None]
  - LUNG INFILTRATION [None]
  - NEUTROPENIA [None]
  - PNEUMONITIS [None]
